FAERS Safety Report 7677244-9 (Version None)
Quarter: 2011Q3

REPORT INFORMATION
  Report Type: 
  Country: None (occurrence: None)
  Receive Date: 20110811
  Receipt Date: 20110802
  Transmission Date: 20111222
  Serious: Yes (Hospitalization, Other)
  Sender: FDA-Public Use
  Company Number: US-BAYER-2010-003080

PATIENT
  Sex: Female
  Weight: 79.365 kg

DRUGS (8)
  1. YAZ [Suspect]
     Indication: ACNE
  2. YAZ [Suspect]
     Indication: PREMENSTRUAL SYNDROME
  3. MINOCYCLINE HCL [Concomitant]
  4. PRISTIQ [Concomitant]
  5. CALCIUM CARBONATE [Concomitant]
  6. YAZ [Suspect]
     Indication: CONTRACEPTION
     Dosage: UNK
     Route: 048
     Dates: start: 20071101, end: 20090515
  7. FOLIC ACID [Concomitant]
  8. MAXALT [Concomitant]

REACTIONS (12)
  - SWELLING FACE [None]
  - PAIN [None]
  - DIZZINESS [None]
  - ASTHENIA [None]
  - BASAL GANGLIA INFARCTION [None]
  - CEREBROVASCULAR ACCIDENT [None]
  - VIITH NERVE PARALYSIS [None]
  - OEDEMA PERIPHERAL [None]
  - APHASIA [None]
  - HEMIPARESIS [None]
  - VASOCONSTRICTION [None]
  - MITRAL VALVE PROLAPSE [None]
